FAERS Safety Report 6892771-X (Version None)
Quarter: 2010Q3

REPORT INFORMATION
  Report Type: 
  Country: None (occurrence: None)
  Receive Date: 20100731
  Receipt Date: 20080904
  Transmission Date: 20110219
  Serious: No
  Sender: FDA-Public Use
  Company Number: US-PFIZER INC-2008074495

PATIENT
  Age: 97 Year
  Sex: Female

DRUGS (1)
  1. FLAGYL I.V. [Suspect]
     Route: 042
     Dates: start: 20080825, end: 20080828

REACTIONS (1)
  - DYSGEUSIA [None]
